FAERS Safety Report 7629137-0 (Version None)
Quarter: 2011Q3

REPORT INFORMATION
  Report Type: 
  Country: None (occurrence: None)
  Receive Date: 20110722
  Receipt Date: 20110426
  Transmission Date: 20111222
  Serious: No
  Sender: FDA-Public Use
  Company Number: US-MUTUAL PHARMACEUTICAL COMPANY, INC.-DXCY20110005

PATIENT
  Sex: Female
  Weight: 59.02 kg

DRUGS (2)
  1. NONE [Concomitant]
  2. DOXYCYCLINE [Suspect]
     Indication: INFECTION PROPHYLAXIS
     Route: 048
     Dates: start: 20110422, end: 20110424

REACTIONS (8)
  - INTENTIONAL DRUG MISUSE [None]
  - PULMONARY CONGESTION [None]
  - NON-CARDIAC CHEST PAIN [None]
  - DIZZINESS [None]
  - HAEMOPTYSIS [None]
  - COUGH [None]
  - SNEEZING [None]
  - HYPOTENSION [None]
